FAERS Safety Report 7583311-0 (Version None)
Quarter: 2011Q2

REPORT INFORMATION
  Report Type: 
  Country: None (occurrence: None)
  Receive Date: 20110630
  Receipt Date: 20110629
  Transmission Date: 20111010
  Serious: Yes (Other)
  Sender: FDA-Public Use
  Company Number: JP-SANOFI-AVENTIS-2011SA039875

PATIENT
  Age: 69 Year
  Sex: Female

DRUGS (1)
  1. TAXOTERE [Suspect]
     Route: 041
     Dates: start: 20110622

REACTIONS (3)
  - ORTHOSTATIC HYPOTENSION [None]
  - AUTONOMIC DYSREFLEXIA [None]
  - SYNCOPE [None]
